FAERS Safety Report 23291735 (Version 3)
Quarter: 2024Q1

REPORT INFORMATION
  Report Type: Spontaneous
  Country: IT (occurrence: IT)
  Receive Date: 20231213
  Receipt Date: 20240115
  Transmission Date: 20240410
  Serious: Yes (Hospitalization)
  Sender: FDA-Public Use
  Company Number: None

PATIENT
  Age: 77 Year
  Sex: Male

DRUGS (7)
  1. ERLEADA [Suspect]
     Active Substance: APALUTAMIDE
     Indication: Prostate cancer
     Dosage: INIZIALMENTE 4CPD DIE, RIDOTTO POI A 3CPD DIE DAL 30/8/23 PER ASTENIA E SUCCESSIVAMENTE A 2CPS DIE D
     Route: 048
     Dates: start: 20230628
  2. TOVASTIBE [Concomitant]
     Indication: Product used for unknown indication
     Dosage: TOVASTIBE 10/20 1 CP DIE
     Route: 065
  3. ELIQUIS [Concomitant]
     Active Substance: APIXABAN
     Indication: Product used for unknown indication
     Dosage: 5MG X 2 DIE
     Route: 048
  4. BISOPROLOL [Concomitant]
     Active Substance: BISOPROLOL\BISOPROLOL FUMARATE
     Indication: Product used for unknown indication
     Dosage: 2.5MG HALF TABLET 1 TIME A DAY
     Route: 048
  5. GONADORELIN [Concomitant]
     Active Substance: GONADORELIN
     Indication: Product used for unknown indication
     Dosage: 11.25MG
     Route: 065
  6. LODICAND [Concomitant]
     Indication: Product used for unknown indication
     Dosage: LODICAND 16/5 1 CP
     Route: 065
  7. OXYPRONAL [Concomitant]
     Indication: Product used for unknown indication
     Dosage: OXYPRONAL 10/5 1 CP EVERY 12 HOURS
     Route: 065

REACTIONS (1)
  - Epilepsy [Not Recovered/Not Resolved]

NARRATIVE: CASE EVENT DATE: 20231124
